FAERS Safety Report 25731091 (Version 1)
Quarter: 2025Q3

REPORT INFORMATION
  Report Type: Report from Study
  Country: US (occurrence: US)
  Receive Date: 20250827
  Receipt Date: 20250827
  Transmission Date: 20251020
  Serious: No
  Sender: MALLINCKRODT
  Company Number: US-MALLINCKRODT-MNK202505293

PATIENT
  Age: 67 Year
  Sex: Male

DRUGS (1)
  1. CORTICOTROPIN [Suspect]
     Active Substance: CORTICOTROPIN
     Indication: Sarcoidosis
     Route: 058
     Dates: start: 202507

REACTIONS (5)
  - Anxiety [Unknown]
  - Blood glucose increased [Unknown]
  - Blood pressure increased [Unknown]
  - Frustration tolerance decreased [Unknown]
  - Irritability [Unknown]

NARRATIVE: CASE EVENT DATE: 20250701
